FAERS Safety Report 8985045 (Version 1)
Quarter: 2012Q4

REPORT INFORMATION
  Report Type: 
  Country: US (occurrence: US)
  Receive Date: 20121226
  Receipt Date: 20121226
  Transmission Date: 20130627
  Serious: No
  Sender: FDA-Public Use
  Company Number: US-PFIZER INC-2012326113

PATIENT
  Age: 71 Year
  Sex: Male
  Weight: 90.2 kg

DRUGS (5)
  1. LYRICA [Suspect]
     Indication: BURNING LEG
     Dosage: 1 DF, daily
     Dates: start: 20121108, end: 20121201
  2. LYRICA [Suspect]
     Indication: PARESTHESIA LOWER LIMB
  3. LYRICA [Suspect]
     Indication: HYPOAESTHESIA
  4. LIPITOR [Concomitant]
     Indication: BLOOD PRESSURE HIGH
     Dosage: 20 mg, daily
  5. LIPITOR [Concomitant]
     Indication: ARTERIAL OCCLUSION

REACTIONS (1)
  - Drug ineffective [Unknown]
